FAERS Safety Report 19449013 (Version 2)
Quarter: 2021Q3

REPORT INFORMATION
  Report Type: Spontaneous
  Country: US (occurrence: US)
  Receive Date: 20210622
  Receipt Date: 20210708
  Transmission Date: 20211014
  Serious: No
  Sender: FDA-Public Use
  Company Number: US-PFIZER INC-2021502589

PATIENT
  Age: 54 Year
  Sex: Male
  Weight: 97.51 kg

DRUGS (4)
  1. INLYTA [Suspect]
     Active Substance: AXITINIB
     Indication: RENAL CELL CARCINOMA
     Dosage: 5 MG, 2X/DAY (TWO TIMES DAILY)
     Route: 048
     Dates: start: 20210326
  2. INLYTA [Suspect]
     Active Substance: AXITINIB
     Indication: RENAL CANCER
  3. INLYTA [Suspect]
     Active Substance: AXITINIB
     Indication: BONE DISORDER
  4. INDOMETHACIN [INDOMETACIN] [Concomitant]
     Active Substance: INDOMETHACIN
     Dosage: UNK

REACTIONS (5)
  - Pain [Unknown]
  - Fatigue [Unknown]
  - Blood pressure increased [Unknown]
  - Dry skin [Unknown]
  - Headache [Unknown]

NARRATIVE: CASE EVENT DATE: 2021
